FAERS Safety Report 10497561 (Version 1)
Quarter: 2014Q4

REPORT INFORMATION
  Report Type: Spontaneous
  Country: IL (occurrence: None)
  Receive Date: 20141002
  Receipt Date: 20141002
  Transmission Date: 20150528
  Serious: Yes (Hospitalization)
  Sender: FDA-Public Use
  Company Number: MIN-00988

PATIENT
  Age: 19 Year
  Sex: Male

DRUGS (1)
  1. MINOCYCLINE [Suspect]
     Active Substance: MINOCYCLINE\MINOCYCLINE HYDROCHLORIDE
     Indication: ACNE
     Dosage: PREVIOUS THREE YEARS
     Route: 048

REACTIONS (1)
  - Polyarteritis nodosa [None]

NARRATIVE: CASE EVENT DATE: 201405
